FAERS Safety Report 18556502 (Version 2)
Quarter: 2021Q2

REPORT INFORMATION
  Report Type: Report from Study
  Country: US (occurrence: US)
  Receive Date: 20201128
  Receipt Date: 20210407
  Transmission Date: 20210717
  Serious: Yes (Hospitalization, Other)
  Sender: FDA-Public Use
  Company Number: US-TAKEDA-2020TUS053127

PATIENT
  Sex: Female

DRUGS (20)
  1. C1 INHIBITOR (HUMAN) [Suspect]
     Active Substance: HUMAN C1-ESTERASE INHIBITOR
     Indication: IMMUNE SYSTEM DISORDER
     Dosage: 1500 INTERNATIONAL UNIT
     Route: 042
     Dates: start: 20160826
  2. C1 INHIBITOR (HUMAN) [Suspect]
     Active Substance: HUMAN C1-ESTERASE INHIBITOR
     Indication: POLYCYSTIC OVARIES
     Dosage: 1500 INTERNATIONAL UNIT, 3/WEEK
     Route: 042
     Dates: start: 20160825
  3. C1 INHIBITOR (HUMAN) [Suspect]
     Active Substance: HUMAN C1-ESTERASE INHIBITOR
     Indication: POLYCYSTIC OVARIES
     Dosage: 1500 INTERNATIONAL UNIT, 3/WEEK
     Route: 042
     Dates: start: 20160825
  4. C1 INHIBITOR (HUMAN) [Suspect]
     Active Substance: HUMAN C1-ESTERASE INHIBITOR
     Indication: VAGINAL HAEMORRHAGE
  5. FIRAZYR [Suspect]
     Active Substance: ICATIBANT ACETATE
     Indication: IMMUNODEFICIENCY
     Dosage: 30 MILLIGRAM, PRN
     Route: 058
     Dates: start: 2016
  6. FIRAZYR [Suspect]
     Active Substance: ICATIBANT ACETATE
     Indication: UTERINE DISORDER
  7. C1 INHIBITOR (HUMAN) [Suspect]
     Active Substance: HUMAN C1-ESTERASE INHIBITOR
     Indication: UTERINE DISORDER
  8. C1 INHIBITOR (HUMAN) [Suspect]
     Active Substance: HUMAN C1-ESTERASE INHIBITOR
     Indication: UTERINE DISORDER
  9. C1 INHIBITOR (HUMAN) [Suspect]
     Active Substance: HUMAN C1-ESTERASE INHIBITOR
     Indication: IMMUNE SYSTEM DISORDER
     Dosage: 1500 INTERNATIONAL UNIT
     Route: 042
     Dates: start: 20160826
  10. C1 INHIBITOR (HUMAN) [Suspect]
     Active Substance: HUMAN C1-ESTERASE INHIBITOR
     Indication: VAGINAL HAEMORRHAGE
  11. C1 INHIBITOR (HUMAN) [Suspect]
     Active Substance: HUMAN C1-ESTERASE INHIBITOR
     Indication: VAGINAL HAEMORRHAGE
  12. FIRAZYR [Suspect]
     Active Substance: ICATIBANT ACETATE
     Indication: UTERINE DISORDER
  13. FIRAZYR [Suspect]
     Active Substance: ICATIBANT ACETATE
     Indication: VAGINAL HAEMORRHAGE
  14. FIRAZYR [Suspect]
     Active Substance: ICATIBANT ACETATE
     Indication: POLYCYSTIC OVARIES
  15. FIRAZYR [Suspect]
     Active Substance: ICATIBANT ACETATE
     Indication: IMMUNODEFICIENCY
     Dosage: 30 MILLIGRAM, PRN
     Route: 058
     Dates: start: 2016
  16. C1 INHIBITOR (HUMAN) [Suspect]
     Active Substance: HUMAN C1-ESTERASE INHIBITOR
     Indication: IMMUNE SYSTEM DISORDER
     Dosage: 1500 INTERNATIONAL UNIT
     Route: 042
     Dates: start: 20160826
  17. FIRAZYR [Suspect]
     Active Substance: ICATIBANT ACETATE
     Indication: POLYCYSTIC OVARIES
  18. C1 INHIBITOR (HUMAN) [Suspect]
     Active Substance: HUMAN C1-ESTERASE INHIBITOR
     Indication: POLYCYSTIC OVARIES
     Dosage: 1500 INTERNATIONAL UNIT, 3/WEEK
     Route: 042
     Dates: start: 20160825
  19. C1 INHIBITOR (HUMAN) [Suspect]
     Active Substance: HUMAN C1-ESTERASE INHIBITOR
     Indication: UTERINE DISORDER
  20. FIRAZYR [Suspect]
     Active Substance: ICATIBANT ACETATE
     Indication: VAGINAL HAEMORRHAGE

REACTIONS (2)
  - Hereditary angioedema [Unknown]
  - Central venous catheterisation [Unknown]
